FAERS Safety Report 6018112-8 (Version None)
Quarter: 2008Q4

REPORT INFORMATION
  Report Type: 
  Country: None (occurrence: None)
  Receive Date: 20081223
  Receipt Date: 20081209
  Transmission Date: 20090506
  Serious: Yes (Other)
  Sender: FDA-Public Use
  Company Number: JP-PFIZER INC-2008156748

PATIENT

DRUGS (2)
  1. AMLODIPINE BESILATE [Suspect]
  2. LOSARTAN POTASSIUM [Suspect]

REACTIONS (3)
  - BLOOD PRESSURE DECREASED [None]
  - OVERDOSE [None]
  - SUICIDE ATTEMPT [None]
